FAERS Safety Report 16271984 (Version 1)
Quarter: 2019Q2

REPORT INFORMATION
  Report Type: Spontaneous
  Country: GB (occurrence: GB)
  Receive Date: 20190503
  Receipt Date: 20190503
  Transmission Date: 20190711
  Serious: Yes (Hospitalization)
  Sender: FDA-Public Use
  Company Number: GB-MYLANLABS-2008S1009993

PATIENT
  Age: 12 Year
  Sex: Male
  Weight: 56 kg

DRUGS (5)
  1. PROPOFOL. [Concomitant]
     Active Substance: PROPOFOL
     Indication: PRODUCT USED FOR UNKNOWN INDICATION
     Dosage: UNK
     Route: 042
     Dates: start: 20080509, end: 20080509
  2. FLIXOTIDE 50 INHALER [Concomitant]
     Dosage: 50 MILLIGRAM, QD
     Route: 055
  3. LIGNOCAINE                         /00033401/ [Concomitant]
     Active Substance: LIDOCAINE HYDROCHLORIDE
     Indication: ANALGESIC THERAPY
     Dosage: UNK
  4. ONDANSETRON [Suspect]
     Active Substance: ONDANSETRON
     Indication: PROCEDURAL NAUSEA
     Dosage: 4 MG,UNK
     Route: 042
     Dates: start: 20080501, end: 20080509
  5. ISOFLURANE. [Concomitant]
     Active Substance: ISOFLURANE
     Dosage: UNK
     Route: 055

REACTIONS (1)
  - Myoclonus [Recovered/Resolved]

NARRATIVE: CASE EVENT DATE: 20080509
